FAERS Safety Report 4285622-3 (Version None)
Quarter: 2004Q1

REPORT INFORMATION
  Report Type: 
  Country: None (occurrence: None)
  Receive Date: 20040202
  Receipt Date: 20040120
  Transmission Date: 20041129
  Serious: Yes (Other)
  Sender: FDA-Public Use
  Company Number: 2004004179

PATIENT
  Age: 51 Year
  Sex: Female
  Weight: 62.5964 kg

DRUGS (5)
  1. LIPITOR [Suspect]
     Indication: BLOOD CHOLESTEROL
     Dosage: 10 MG (DAILY), ORAL
     Route: 048
     Dates: start: 20030401, end: 20040114
  2. TOPIRAMATE [Suspect]
     Indication: ILL-DEFINED DISORDER
     Dates: start: 20030101
  3. AMOXICILLIN [Suspect]
     Indication: TOOTH ABSCESS
     Dosage: ORAL
     Route: 048
     Dates: start: 20040101
  4. MULTIVITAMIN [Concomitant]
  5. RIZATRIPTAN BENZOATE (RIZATRIPTAN BENZOATE) [Concomitant]

REACTIONS (5)
  - DECREASED APPETITE [None]
  - MYALGIA [None]
  - TOOTH ABSCESS [None]
  - UNEXPECTED THERAPEUTIC DRUG EFFECT [None]
  - WEIGHT DECREASED [None]
